FAERS Safety Report 5323662-3 (Version None)
Quarter: 2007Q2

REPORT INFORMATION
  Report Type: 
  Country: None (occurrence: None)
  Receive Date: 20070507
  Receipt Date: 20070425
  Transmission Date: 20071010
  Serious: Yes (Hospitalization)
  Sender: FDA-Public Use
  Company Number: 190004L07JPN

PATIENT
  Age: 31 Year
  Sex: Female

DRUGS (2)
  1. CHORIONIC GONADOTROPIN [Suspect]
     Indication: ASSISTED FERTILISATION
  2. MENOTROPINS [Suspect]
     Indication: ASSISTED FERTILISATION

REACTIONS (4)
  - DRUG EXPOSURE DURING PREGNANCY [None]
  - OVARIAN HYPERSTIMULATION SYNDROME [None]
  - OVARIAN NEOPLASM [None]
  - OVARIAN TORSION [None]
